FAERS Safety Report 12873507 (Version 1)
Quarter: 2016Q4

REPORT INFORMATION
  Report Type: Spontaneous
  Country: SE (occurrence: SE)
  Receive Date: 20161021
  Receipt Date: 20161021
  Transmission Date: 20170207
  Serious: Yes (Hospitalization, Other)
  Sender: FDA-Public Use
  Company Number: SE-ASTRAZENECA-2016SF08580

PATIENT
  Age: 78 Year
  Sex: Female

DRUGS (2)
  1. CRESTOR [Suspect]
     Active Substance: ROSUVASTATIN CALCIUM
     Route: 048
     Dates: start: 20160520, end: 20160801
  2. CRESTOR [Suspect]
     Active Substance: ROSUVASTATIN CALCIUM
     Route: 048
     Dates: start: 20160801, end: 20161001

REACTIONS (10)
  - Myocardial infarction [Unknown]
  - Gastric ulcer [Unknown]
  - Renal failure [Unknown]
  - Oesophageal candidiasis [Unknown]
  - Renal disorder [Unknown]
  - Liver disorder [Unknown]
  - Myoglobin blood increased [Unknown]
  - Dehydration [Unknown]
  - Nausea [Unknown]
  - Vomiting [Unknown]

NARRATIVE: CASE EVENT DATE: 201609
